FAERS Safety Report 9434557 (Version 1)
Quarter: 2013Q3

REPORT INFORMATION
  Report Type: Spontaneous
  Country: US (occurrence: US)
  Receive Date: 20130729
  Receipt Date: 20130729
  Transmission Date: 20140515
  Serious: Yes (Hospitalization)
  Sender: FDA-Public Use
  Company Number: USA/USA/13/0029693

PATIENT
  Age: 27 Year
  Sex: Female

DRUGS (1)
  1. FEXOFENADINE HCL OTC (FEXOFENADINE) [Suspect]
     Indication: PRODUCT USED FOR UNKNOWN INDICATION
     Route: 048
     Dates: start: 20130520

REACTIONS (3)
  - Foreign body [None]
  - Oesophageal rupture [None]
  - Product quality issue [None]
